FAERS Safety Report 14030897 (Version 1)
Quarter: 2017Q4

REPORT INFORMATION
  Report Type: Spontaneous
  Country: GB (occurrence: GB)
  Receive Date: 20171002
  Receipt Date: 20171002
  Transmission Date: 20180321
  Serious: Yes (Other)
  Sender: FDA-Public Use
  Company Number: GB-TEVA-809278ACC

PATIENT
  Age: 29 Year
  Sex: Female
  Weight: 57 kg

DRUGS (1)
  1. LEVONORGESTREL. [Suspect]
     Active Substance: LEVONORGESTREL
     Dosage: 20MCG/24 HOURS.
     Route: 067
     Dates: start: 20170316, end: 20170909

REACTIONS (2)
  - Arthralgia [Recovering/Resolving]
  - Mood swings [Recovering/Resolving]
